FAERS Safety Report 21652914 (Version 1)
Quarter: 2022Q4

REPORT INFORMATION
  Report Type: Spontaneous
  Country: PT (occurrence: PT)
  Receive Date: 20221128
  Receipt Date: 20221128
  Transmission Date: 20230113
  Serious: Yes (Other)
  Sender: FDA-Public Use
  Company Number: PT-FreseniusKabi-FK202216407

PATIENT
  Age: 91 Year
  Sex: Female

DRUGS (6)
  1. LIDOCAINE [Suspect]
     Active Substance: LIDOCAINE
     Indication: Local anaesthesia
     Dosage: SHE UNDERWENT  SEDOANALGESIA  WITH  FENTANYL  20MCG,  DROPERIDOL  0.625MG  AND  LEFT  RETROBULBAR BL
  2. ROPIVACAINE [Suspect]
     Active Substance: ROPIVACAINE
     Indication: Local anaesthesia
     Dosage: SHE UNDERWENT  SEDOANALGESIA  WITH  FENTANYL  20MCG,  DROPERIDOL  0.625MG  AND  LEFT  RETROBULBAR BL
  3. FENTANYL 20mcg [Concomitant]
     Indication: Analgesic therapy
     Dosage: SHE UNDERWENT  SEDOANALGESIA  WITH  FENTANYL  20MCG,  DROPERIDOL  0.625MG  AND  LEFT  RETROBULBAR BL
  4. FENTANYL 20mcg [Concomitant]
     Indication: Sedation
  5. DROPERIDOL [Concomitant]
     Active Substance: DROPERIDOL
     Indication: Analgesic therapy
     Dosage: SHE UNDERWENT  SEDOANALGESIA  WITH  FENTANYL  20MCG,  DROPERIDOL  0.625MG  AND  LEFT  RETROBULBAR BL
  6. DROPERIDOL [Concomitant]
     Active Substance: DROPERIDOL
     Indication: Sedation

REACTIONS (2)
  - Brain stem syndrome [Recovered/Resolved]
  - Product administration error [Recovered/Resolved]
